FAERS Safety Report 14391844 (Version 2)
Quarter: 2018Q1

REPORT INFORMATION
  Report Type: Spontaneous
  Country: CA (occurrence: CA)
  Receive Date: 20180116
  Receipt Date: 20180201
  Transmission Date: 20180509
  Serious: Yes (Other)
  Sender: FDA-Public Use
  Company Number: CA-ASTELLAS-2018US000769

PATIENT
  Age: 69 Year
  Sex: Female

DRUGS (6)
  1. MYRBETRIQ [Suspect]
     Active Substance: MIRABEGRON
     Route: 065
  2. AVASTIN [Suspect]
     Active Substance: BEVACIZUMAB
     Route: 042
  3. MYRBETRIQ [Suspect]
     Active Substance: MIRABEGRON
     Indication: PRODUCT USED FOR UNKNOWN INDICATION
     Route: 065
  4. PROLIA [Concomitant]
     Active Substance: DENOSUMAB
     Indication: PRODUCT USED FOR UNKNOWN INDICATION
     Dosage: UNK UNK, 1 EVERY 6 MONTHS
     Route: 058
  5. AVASTIN [Suspect]
     Active Substance: BEVACIZUMAB
     Dosage: 420.0 MG, EVERY 3 WEEKS
     Route: 042
  6. AVASTIN [Suspect]
     Active Substance: BEVACIZUMAB
     Indication: OVARIAN CANCER
     Dosage: 420.0 MG, EVERY 3 WEEKS
     Route: 042

REACTIONS (7)
  - Tendonitis [Recovered/Resolved]
  - Osteoarthritis [Recovered/Resolved]
  - Hypertension [Recovered/Resolved]
  - Intentional product misuse [Unknown]
  - Chest discomfort [Recovered/Resolved]
  - Malaise [Recovered/Resolved]
  - Nervousness [Recovered/Resolved]
